FAERS Safety Report 7735555-2 (Version None)
Quarter: 2011Q3

REPORT INFORMATION
  Report Type: 
  Country: None (occurrence: None)
  Receive Date: 20110907
  Receipt Date: 20110901
  Transmission Date: 20111222
  Serious: Yes (Hospitalization)
  Sender: FDA-Public Use
  Company Number: IT-GILEAD-2011-0042714

PATIENT
  Sex: Female

DRUGS (3)
  1. TRUVADA [Suspect]
     Indication: ACUTE HIV INFECTION
     Route: 048
     Dates: start: 20110624, end: 20110805
  2. REYATAZ [Suspect]
     Indication: ACUTE HIV INFECTION
     Route: 048
     Dates: start: 20110624, end: 20110805
  3. NORVIR [Concomitant]
     Indication: ACUTE HIV INFECTION
     Route: 048
     Dates: start: 20110624, end: 20110805

REACTIONS (1)
  - ABORTION SPONTANEOUS [None]
